FAERS Safety Report 5871238-1 (Version None)
Quarter: 2008Q3

REPORT INFORMATION
  Report Type: 
  Country: None (occurrence: None)
  Receive Date: 20080903
  Receipt Date: 20080903
  Transmission Date: 20090109
  Serious: Yes (Death, Hospitalization, Disabling, Other)
  Sender: FDA-Public Use
  Company Number: None

PATIENT
  Age: 41 Year
  Sex: Male
  Weight: 69.8539 kg

DRUGS (1)
  1. SINGULAIR [Suspect]
     Indication: ASTHMA
     Dosage: 10 MG, COULD BE MORE TIME
     Dates: start: 20040301, end: 20060712

REACTIONS (5)
  - COMPLETED SUICIDE [None]
  - OSTEOPOROSIS [None]
  - PERSONALITY CHANGE [None]
  - SPINAL FRACTURE [None]
  - THERMAL BURN [None]
